FAERS Safety Report 9170776 (Version 1)
Quarter: 2013Q1

REPORT INFORMATION
  Report Type: Spontaneous
  Country: US (occurrence: US)
  Receive Date: 20130319
  Receipt Date: 20130319
  Transmission Date: 20140127
  Serious: No
  Sender: FDA-Public Use
  Company Number: US-PFIZER INC-2013089049

PATIENT
  Age: 69 Year
  Sex: Male
  Weight: 79.37 kg

DRUGS (8)
  1. LYRICA [Suspect]
     Indication: NEUROPATHY PERIPHERAL
     Dosage: 100 MG, 2X/DAY
     Route: 048
     Dates: start: 2012
  2. GABAPENTIN [Suspect]
     Indication: NEUROPATHY PERIPHERAL
     Dosage: UNK
     Dates: start: 2010
  3. GABAPENTIN [Suspect]
     Dosage: 350MG THREE TABLETS, 3X/DAY
     Dates: end: 2012
  4. AMITRIPTYLINE [Concomitant]
     Indication: HYPERTENSION
     Dosage: UNK
  5. AMLODIPINE [Concomitant]
     Indication: HYPERTENSION
     Dosage: 5 MG, 2X/DAY
  6. FLOMAX [Concomitant]
     Indication: BLADDER DISORDER
     Dosage: 0.4 MG, 1X/DAY
  7. ALLOPURINOL [Concomitant]
     Indication: NEPHROLITHIASIS
     Dosage: 300 MG, 1X/DAY
  8. ALLOPURINOL [Concomitant]
     Indication: BLOOD URIC ACID ABNORMAL

REACTIONS (1)
  - Drug ineffective [Unknown]
